FAERS Safety Report 9429736 (Version 1)
Quarter: 2013Q3

REPORT INFORMATION
  Report Type: Spontaneous
  Country: DE (occurrence: DE)
  Receive Date: 20130730
  Receipt Date: 20130730
  Transmission Date: 20140515
  Serious: Yes (Death, Life-Threatening)
  Sender: FDA-Public Use
  Company Number: DE-B.I. PHARMACEUTICALS,INC./RIDGEFIELD-2013-DE-01764DE

PATIENT
  Age: 73 Year
  Sex: Male

DRUGS (4)
  1. PRADAXA [Suspect]
     Indication: ATRIAL FIBRILLATION
     Dosage: 300 MG
     Route: 048
  2. METFORMIN [Concomitant]
     Indication: DIABETES MELLITUS
     Dosage: 2000 MG
     Route: 048
  3. VILDAGLIPTIN [Concomitant]
     Indication: DIABETES MELLITUS
     Dosage: 50 MG
     Route: 048
  4. LEVEMIR [Concomitant]
     Indication: DIABETES MELLITUS
     Dosage: 4 U
     Route: 058

REACTIONS (2)
  - Brain death [Fatal]
  - Haemorrhage intracranial [Fatal]
